FAERS Safety Report 19951150 (Version 1)
Quarter: 2021Q4

REPORT INFORMATION
  Report Type: Spontaneous
  Country: CN (occurrence: CN)
  Receive Date: 20211013
  Receipt Date: 20211013
  Transmission Date: 20220303
  Serious: Yes (Other)
  Sender: FDA-Public Use
  Company Number: CN-009507513-2110CHN002192

PATIENT
  Age: 87 Year
  Sex: Male
  Weight: 65 kg

DRUGS (2)
  1. CILASTATIN SODIUM\IMIPENEM [Suspect]
     Active Substance: CILASTATIN SODIUM\IMIPENEM
     Indication: Abdominal infection
     Dosage: 1 GRAM, ONCE A DAY (ALSO REPORTED AS Q8H)
     Route: 041
     Dates: start: 20210910, end: 20210912
  2. SODIUM CHLORID [Concomitant]
     Indication: Abdominal infection
     Dosage: 100 MILLILITER, ONCE A DAY (ALSO REPORTED AS Q8H)
     Route: 041
     Dates: start: 20210910, end: 20210912

REACTIONS (1)
  - Epilepsy [Recovering/Resolving]

NARRATIVE: CASE EVENT DATE: 20210912
